FAERS Safety Report 8027340-1 (Version None)
Quarter: 2012Q1

REPORT INFORMATION
  Report Type: 
  Country: None (occurrence: None)
  Receive Date: 20120105
  Receipt Date: 20120105
  Transmission Date: 20120608
  Serious: No
  Sender: FDA-Public Use
  Company Number: None

PATIENT
  Sex: Female

DRUGS (2)
  1. PRAVASTATIN [Suspect]
     Dosage: 80MG QD PO
     Route: 048
     Dates: start: 20111106
  2. NIASPAN [Suspect]
     Dosage: 500 QD PO
     Route: 048
     Dates: start: 20111213

REACTIONS (4)
  - INSOMNIA [None]
  - RESTLESS LEGS SYNDROME [None]
  - HALLUCINATION [None]
  - DRUG INTOLERANCE [None]
